FAERS Safety Report 23516556 (Version 3)
Quarter: 2024Q1

REPORT INFORMATION
  Report Type: Spontaneous
  Country: CN (occurrence: CN)
  Receive Date: 20240213
  Receipt Date: 20240306
  Transmission Date: 20240410
  Serious: Yes (Hospitalization, Other)
  Sender: FDA-Public Use
  Company Number: CN-BEIGENE-BGN-2024-001926

PATIENT

DRUGS (6)
  1. BRUKINSA [Suspect]
     Active Substance: ZANUBRUTINIB
     Indication: Mantle cell lymphoma
     Dosage: UNK
     Route: 048
     Dates: start: 202211
  2. BRUKINSA [Suspect]
     Active Substance: ZANUBRUTINIB
     Dosage: UNK
     Route: 048
     Dates: start: 202307
  3. BRUKINSA [Suspect]
     Active Substance: ZANUBRUTINIB
     Dosage: UNK
     Route: 048
     Dates: start: 202311
  4. GAZYVA [Suspect]
     Active Substance: OBINUTUZUMAB
     Indication: Mantle cell lymphoma
     Dosage: UNK
     Dates: start: 202211
  5. GAZYVA [Suspect]
     Active Substance: OBINUTUZUMAB
     Dosage: UNK
     Dates: start: 202307
  6. BORTEZOMIB [Suspect]
     Active Substance: BORTEZOMIB
     Indication: Mantle cell lymphoma
     Dosage: UNK
     Dates: start: 202311

REACTIONS (9)
  - Cerebral ischaemia [Unknown]
  - Neurodegenerative disorder [Unknown]
  - COVID-19 pneumonia [Recovered/Resolved]
  - Disease progression [Unknown]
  - Sinusitis [Unknown]
  - Hepatic steatosis [Unknown]
  - Cholelithiasis [Unknown]
  - Treatment failure [Unknown]
  - Drug ineffective [Unknown]
